FAERS Safety Report 11729742 (Version 1)
Quarter: 2015Q4

REPORT INFORMATION
  Report Type: Spontaneous
  Country: US (occurrence: US)
  Receive Date: 20151112
  Receipt Date: 20151112
  Transmission Date: 20160304
  Serious: Yes (Hospitalization)
  Sender: FDA-Public Use
  Company Number: US-PFIZER INC-2015382963

PATIENT
  Age: 59 Year
  Sex: Female

DRUGS (2)
  1. REVATIO [Suspect]
     Active Substance: SILDENAFIL CITRATE
     Indication: CATHETERISATION CARDIAC
     Dosage: 20 MG, 3X/DAY
     Dates: start: 201509
  2. REVATIO [Suspect]
     Active Substance: SILDENAFIL CITRATE
     Indication: PULMONARY HYPERTENSION
     Dosage: 40 MG, 3X/DAY
     Dates: start: 2015

REACTIONS (2)
  - Product use issue [Unknown]
  - Asthma [Unknown]

NARRATIVE: CASE EVENT DATE: 2015
